FAERS Safety Report 7575167-7 (Version None)
Quarter: 2011Q2

REPORT INFORMATION
  Report Type: 
  Country: None (occurrence: None)
  Receive Date: 20110627
  Receipt Date: 20110623
  Transmission Date: 20111010
  Serious: Yes (Other)
  Sender: FDA-Public Use
  Company Number: FR-PFIZER INC-2011139777

PATIENT
  Age: 87 Year
  Sex: Female

DRUGS (1)
  1. ALPRAZOLAM [Suspect]
     Dosage: 0.5 MG, UNK

REACTIONS (6)
  - SKIN PLAQUE [None]
  - PRURITUS [None]
  - DELUSION [None]
  - NIGHTMARE [None]
  - HALLUCINATIONS, MIXED [None]
  - AGGRESSION [None]
